FAERS Safety Report 8466230-7 (Version None)
Quarter: 2012Q2

REPORT INFORMATION
  Report Type: 
  Country: None (occurrence: None)
  Receive Date: 20120620
  Receipt Date: 20120620
  Transmission Date: 20120825
  Serious: Yes (Hospitalization)
  Sender: FDA-Public Use
  Company Number: None

PATIENT

DRUGS (2)
  1. INTEGRILIN [Suspect]
     Indication: CATHETERISATION CARDIAC
     Dosage: IV DRIP
     Route: 041
     Dates: start: 20120609, end: 20120609
  2. INTEGRILIN [Suspect]
     Indication: MYOCARDIAL INFARCTION
     Dosage: IV DRIP
     Route: 041
     Dates: start: 20120609, end: 20120609

REACTIONS (1)
  - THROMBOCYTOPENIA [None]
